FAERS Safety Report 5491942-7 (Version None)
Quarter: 2007Q4

REPORT INFORMATION
  Report Type: 
  Country: None (occurrence: None)
  Receive Date: 20071018
  Receipt Date: 20071018
  Transmission Date: 20080405
  Serious: Yes (Other)
  Sender: FDA-Public Use
  Company Number: None

PATIENT
  Age: 6 Year
  Sex: Male
  Weight: 20.4119 kg

DRUGS (1)
  1. CONCERTA [Suspect]

REACTIONS (3)
  - ABASIA [None]
  - DEPRESSED LEVEL OF CONSCIOUSNESS [None]
  - MUSCULAR WEAKNESS [None]
